FAERS Safety Report 7529281-2 (Version None)
Quarter: 2011Q2

REPORT INFORMATION
  Report Type: 
  Country: None (occurrence: None)
  Receive Date: 20110607
  Receipt Date: 20110504
  Transmission Date: 20111010
  Serious: Yes (Hospitalization, Other)
  Sender: FDA-Public Use
  Company Number: US-TYCO HEALTHCARE/MALLINCKRODT-T201100701

PATIENT
  Sex: Female
  Weight: 43.084 kg

DRUGS (7)
  1. XANAX [Concomitant]
     Indication: ANXIETY
     Dosage: 4 MG, QD
     Route: 048
  2. XANAX [Concomitant]
     Indication: INSOMNIA
  3. DILAUDID [Concomitant]
     Dosage: 4 MG, QID
     Dates: end: 20110116
  4. DILAUDID [Suspect]
     Indication: NECK PAIN
     Dosage: 4 MG, QID, QOD ALTERNATING DAYS WITH EXALGO
     Route: 048
     Dates: start: 20110117, end: 20110119
  5. PROTONIX [Concomitant]
     Indication: GASTROINTESTINAL DISORDER
  6. EXALGO [Suspect]
     Indication: NECK PAIN
     Dosage: 16 MG, QOD ALTERNATING WITH DILAUDID
     Route: 048
     Dates: start: 20110116, end: 20110120
  7. ZOFRAN [Concomitant]
     Indication: GASTROINTESTINAL DISORDER

REACTIONS (5)
  - PALPITATIONS [None]
  - ASTHENIA [None]
  - CHEST PAIN [None]
  - DRUG WITHDRAWAL SYNDROME [None]
  - HEART RATE IRREGULAR [None]
